FAERS Safety Report 25908439 (Version 1)
Quarter: 2025Q4

REPORT INFORMATION
  Report Type: Spontaneous
  Country: US (occurrence: None)
  Receive Date: 20251010
  Receipt Date: 20251010
  Transmission Date: 20260117
  Serious: No
  Sender: FDA-CTU
  Company Number: None

PATIENT
  Sex: Female
  Weight: 118.84 kg

DRUGS (3)
  1. NEXPLANON [Suspect]
     Active Substance: ETONOGESTREL
  2. METHIMAZOLE [Concomitant]
     Active Substance: METHIMAZOLE
  3. Propranlol [Concomitant]

REACTIONS (2)
  - Heavy menstrual bleeding [None]
  - Heavy menstrual bleeding [None]
